FAERS Safety Report 18659352 (Version 1)
Quarter: 2020Q4

REPORT INFORMATION
  Report Type: Other
  Country: FR (occurrence: FR)
  Receive Date: 20201223
  Receipt Date: 20201223
  Transmission Date: 20210114
  Serious: Yes (Hospitalization)
  Sender: FDA-Public Use
  Company Number: FR-GE HEALTHCARE LIFE SCIENCES-2020CSU006592

PATIENT

DRUGS (3)
  1. OMNIPAQUE [Suspect]
     Active Substance: IOHEXOL
     Indication: COMPUTERISED TOMOGRAM
     Dosage: UNK UNK, SINGLE
     Route: 042
     Dates: start: 20200709, end: 20200709
  2. OMNIPAQUE [Suspect]
     Active Substance: IOHEXOL
     Indication: PRODUCT USED FOR UNKNOWN INDICATION
  3. KINERET [Concomitant]
     Active Substance: ANAKINRA
     Indication: STILL^S DISEASE
     Dosage: 75 MG, WEEKLY
     Route: 058
     Dates: start: 20200606, end: 20200710

REACTIONS (5)
  - Oxygen saturation decreased [Recovered/Resolved]
  - Dysphonia [Recovered/Resolved]
  - Hyperthermia [Recovered/Resolved]
  - Rash [Recovered/Resolved]
  - Hypotension [Recovered/Resolved]

NARRATIVE: CASE EVENT DATE: 20200709
